FAERS Safety Report 6128630-X (Version None)
Quarter: 2009Q1

REPORT INFORMATION
  Report Type: 
  Country: None (occurrence: None)
  Receive Date: 20090323
  Receipt Date: 20090311
  Transmission Date: 20090719
  Serious: Yes (Hospitalization)
  Sender: FDA-Public Use
  Company Number: US-B.I. PHARMACEUTICALS,INC./RIDGEFIELD-2008-BP-14277BP

PATIENT
  Sex: Female

DRUGS (9)
  1. MIRAPEX [Suspect]
     Indication: FIBROMYALGIA
     Dosage: SEE NARRATIVE
     Route: 048
     Dates: start: 20060109, end: 20080930
  2. MIRAPEX [Suspect]
     Indication: INSOMNIA
  3. MIRAPEX [Suspect]
     Indication: MALAISE
  4. PLAQUENIL [Concomitant]
     Indication: SYSTEMIC LUPUS ERYTHEMATOSUS
  5. ADVAIR HFA [Concomitant]
     Indication: ASTHMA
  6. CYCLOBENZAPRINE [Concomitant]
     Dosage: 30MG
     Dates: start: 20060110
  7. VELIVET PILPAK [Concomitant]
     Dosage: 1ANZ
     Dates: start: 20060118
  8. BUPROPION HCL [Concomitant]
     Dosage: 300MG
     Dates: start: 20060301
  9. ZOLOFT [Concomitant]
     Dosage: 75MG
     Dates: start: 20060121

REACTIONS (14)
  - ANXIETY [None]
  - COMPULSIVE SHOPPING [None]
  - CONFUSIONAL STATE [None]
  - CONVULSION [None]
  - DELUSION OF GRANDEUR [None]
  - DENTAL CARIES [None]
  - DEPRESSION [None]
  - FATIGUE [None]
  - INFECTION [None]
  - INSOMNIA [None]
  - OBSESSIVE-COMPULSIVE DISORDER [None]
  - PERSONALITY CHANGE [None]
  - SUICIDAL IDEATION [None]
  - WEIGHT DECREASED [None]
